FAERS Safety Report 8141142-7 (Version None)
Quarter: 2012Q1

REPORT INFORMATION
  Report Type: 
  Country: None (occurrence: None)
  Receive Date: 20120216
  Receipt Date: 20120210
  Transmission Date: 20120608
  Serious: Yes (Other)
  Sender: FDA-Public Use
  Company Number: US-BAYER-2012-014225

PATIENT
  Sex: Female

DRUGS (1)
  1. ASPIRIN [Suspect]
     Indication: HEADACHE
     Dosage: 2 DF, UNK
     Route: 048

REACTIONS (5)
  - GASTROOESOPHAGEAL REFLUX DISEASE [None]
  - DYSPNOEA [None]
  - URTICARIA [None]
  - CHEST PAIN [None]
  - HYPERSENSITIVITY [None]
